FAERS Safety Report 9630674 (Version 1)
Quarter: 2013Q4

REPORT INFORMATION
  Report Type: Spontaneous
  Country: DE (occurrence: DE)
  Receive Date: 20131018
  Receipt Date: 20131018
  Transmission Date: 20140711
  Serious: Yes (Death, Disabling, Other)
  Sender: FDA-Public Use
  Company Number: DE-BRISTOL-MYERS SQUIBB COMPANY-19546340

PATIENT
  Age: 83 Year
  Sex: Female

DRUGS (15)
  1. ERBITUX [Suspect]
     Indication: RECTAL CANCER METASTATIC
     Route: 042
     Dates: start: 20111011, end: 20120115
  2. AVASTIN [Suspect]
     Indication: RECTAL CANCER METASTATIC
  3. CAPECITABINE [Suspect]
     Indication: RECTAL CANCER METASTATIC
     Route: 048
     Dates: start: 20100920, end: 20120115
  4. OXALIPLATIN [Suspect]
     Indication: RECTAL CANCER METASTATIC
     Route: 048
     Dates: start: 20100920, end: 20120115
  5. HYDROCHLOROTHIAZIDE [Concomitant]
     Indication: HYPERTENSION
     Route: 048
  6. VESDIL [Concomitant]
     Indication: HYPERTENSION
     Route: 048
  7. DIGIMERCK [Concomitant]
     Indication: CARDIAC FAILURE
     Route: 048
     Dates: end: 20120730
  8. BELOC-ZOK [Concomitant]
     Indication: HYPERTENSION
     Route: 048
     Dates: start: 20120730
  9. OMEPRAZOLE [Concomitant]
     Indication: GASTRITIS
     Route: 048
     Dates: end: 20120730
  10. IBUPROFEN [Concomitant]
     Indication: PAIN
     Route: 048
     Dates: end: 20120730
  11. LOPERAMIDE [Concomitant]
     Indication: DIARRHOEA
     Route: 048
  12. METAMIZOLE MAGNESIUM [Concomitant]
     Indication: PAIN
     Route: 048
     Dates: start: 201101, end: 20120730
  13. TILIDINE [Concomitant]
     Indication: PAIN
     Route: 048
     Dates: start: 201101, end: 20120730
  14. RAMIPRIL [Concomitant]
     Indication: HYPERTENSION
     Route: 048
     Dates: end: 20120730
  15. RIVAROXABAN [Concomitant]
     Indication: ANTICOAGULANT THERAPY
     Route: 048
     Dates: start: 20120515, end: 20120730

REACTIONS (5)
  - Death [Fatal]
  - Cerebrovascular accident [Recovered/Resolved with Sequelae]
  - Embolism arterial [Recovered/Resolved]
  - Nail bed inflammation [Recovered/Resolved]
  - Rash [Recovered/Resolved]
